FAERS Safety Report 9796991 (Version 1)
Quarter: 2014Q1

REPORT INFORMATION
  Report Type: Spontaneous
  Country: US (occurrence: US)
  Receive Date: 20140105
  Receipt Date: 20140105
  Transmission Date: 20141002
  Serious: Yes (Death)
  Sender: FDA-Public Use
  Company Number: US-UCBSA-107714

PATIENT
  Age: 46 Year
  Sex: Male

DRUGS (4)
  1. ALPRAZOLAM [Suspect]
  2. FENTANYL [Suspect]
  3. MORPHINE [Suspect]
  4. DIAZEPAM [Suspect]

REACTIONS (1)
  - Toxicity to various agents [Fatal]
